FAERS Safety Report 16858856 (Version 2)
Quarter: 2019Q4

REPORT INFORMATION
  Report Type: Spontaneous
  Country: US (occurrence: US)
  Receive Date: 20190926
  Receipt Date: 20191022
  Transmission Date: 20200122
  Serious: Yes (Hospitalization)
  Sender: FDA-Public Use
  Company Number: US-VIFOR (INTERNATIONAL) INC.-VIT-2019-09190

PATIENT
  Age: 42 Year
  Sex: Male
  Weight: 99.5 kg

DRUGS (3)
  1. VELTASSA [Suspect]
     Active Substance: PATIROMER
     Dosage: 1/2 OF 8.4 G VELTASSA PACKET
     Dates: start: 20191003
  2. VELTASSA [Suspect]
     Active Substance: PATIROMER
     Indication: HYPERKALAEMIA
     Dosage: 1/2 OF 8.4 G VELTASSA PACKET
     Dates: start: 20190913
  3. VELTASSA [Suspect]
     Active Substance: PATIROMER

REACTIONS (2)
  - Off label use [Unknown]
  - Osteomyelitis [Recovering/Resolving]

NARRATIVE: CASE EVENT DATE: 2019
